FAERS Safety Report 9111763 (Version 1)
Quarter: 2013Q1

REPORT INFORMATION
  Report Type: Spontaneous
  Country: US (occurrence: US)
  Receive Date: 20130219
  Receipt Date: 20130219
  Transmission Date: 20140127
  Serious: No
  Sender: FDA-Public Use
  Company Number: US-BRISTOL-MYERS SQUIBB COMPANY-16743700

PATIENT
  Age: 62 Year
  Sex: Female
  Weight: 80.72 kg

DRUGS (1)
  1. ORENCIA [Suspect]
     Dosage: PRESCRIPTION #: 938144
     Route: 058
     Dates: start: 20120628

REACTIONS (3)
  - Oropharyngeal pain [Recovering/Resolving]
  - Headache [Not Recovered/Not Resolved]
  - Local swelling [Recovering/Resolving]
